FAERS Safety Report 15323600 (Version 1)
Quarter: 2018Q3

REPORT INFORMATION
  Report Type: Spontaneous
  Country: US (occurrence: US)
  Receive Date: 20180827
  Receipt Date: 20180827
  Transmission Date: 20181010
  Serious: Yes (Other)
  Sender: FDA-Public Use
  Company Number: US-ABBVIE-18K-163-2462943-00

PATIENT
  Sex: Female

DRUGS (6)
  1. XELJANZ XR [Concomitant]
     Active Substance: TOFACITINIB CITRATE
     Indication: PRODUCT USED FOR UNKNOWN INDICATION
     Dates: start: 2018
  2. HUMIRA [Suspect]
     Active Substance: ADALIMUMAB
     Indication: RHEUMATOID ARTHRITIS
     Route: 058
  3. ENBREL [Suspect]
     Active Substance: ETANERCEPT
     Route: 058
     Dates: start: 20171201, end: 20171218
  4. METHOTREXATE. [Concomitant]
     Active Substance: METHOTREXATE
     Indication: PRODUCT USED FOR UNKNOWN INDICATION
     Dates: start: 201712
  5. ENBREL [Suspect]
     Active Substance: ETANERCEPT
     Route: 058
  6. ENBREL [Suspect]
     Active Substance: ETANERCEPT
     Indication: RHEUMATOID ARTHRITIS
     Route: 058
     Dates: start: 20171108

REACTIONS (34)
  - Rheumatoid nodule [Unknown]
  - Ocular hyperaemia [Unknown]
  - Myalgia [Unknown]
  - Swelling [Unknown]
  - Injection site urticaria [Unknown]
  - Drug ineffective [Unknown]
  - Paraesthesia [Unknown]
  - Injection site pruritus [Unknown]
  - Drug effect decreased [Unknown]
  - Arthropathy [Unknown]
  - Eyelid oedema [Unknown]
  - Dyspnoea [Unknown]
  - Injection site bruising [Unknown]
  - Rheumatoid arthritis [Unknown]
  - Skin lesion [Unknown]
  - Rash papular [Unknown]
  - Injection site swelling [Recovering/Resolving]
  - Heat oedema [Unknown]
  - Mobility decreased [Unknown]
  - Swelling face [Unknown]
  - Injection site erythema [Unknown]
  - Peripheral swelling [Unknown]
  - Pain in extremity [Unknown]
  - Urticaria [Unknown]
  - Gait disturbance [Unknown]
  - Scratch [Unknown]
  - Lacrimation increased [Unknown]
  - Crying [Unknown]
  - Vomiting [Unknown]
  - Arthralgia [Unknown]
  - Fracture [Unknown]
  - Rash pruritic [Unknown]
  - Hypoaesthesia [Unknown]
  - Injection site papule [Unknown]

NARRATIVE: CASE EVENT DATE: 2018
